FAERS Safety Report 21070663 (Version 2)
Quarter: 2022Q3

REPORT INFORMATION
  Report Type: Report from Study
  Country: DE (occurrence: DE)
  Receive Date: 20220712
  Receipt Date: 20220712
  Transmission Date: 20221027
  Serious: Yes (Other)
  Sender: FDA-Public Use
  Company Number: DE-GILEAD-2022-0576372

PATIENT
  Age: 35 Year
  Sex: Male
  Weight: 113 kg

DRUGS (5)
  1. SOFOSBUVIR\VELPATASVIR [Suspect]
     Active Substance: SOFOSBUVIR\VELPATASVIR
     Indication: Chronic hepatitis C
     Dosage: 1 DOSAGE FORM, QD
     Route: 048
     Dates: start: 20220331, end: 20220622
  2. DOLOPHINE [Suspect]
     Active Substance: METHADONE HYDROCHLORIDE
     Indication: Drug dependence
     Dosage: 160 MG, QD
     Route: 048
     Dates: start: 20201015
  3. DOXEPIN [Suspect]
     Active Substance: DOXEPIN
     Indication: Depression
     Dosage: 75 MG, QD
     Route: 048
     Dates: start: 20201028, end: 20220519
  4. DOXEPIN [Suspect]
     Active Substance: DOXEPIN
     Dosage: 75 MG, QD
     Route: 048
     Dates: start: 20210127
  5. LEVOMETHADONE [Suspect]
     Active Substance: LEVOMETHADONE
     Indication: Drug dependence
     Dosage: 30 MG, QD
     Route: 048
     Dates: start: 20210127

REACTIONS (11)
  - Coronary artery disease [Recovering/Resolving]
  - Diarrhoea [Not Recovered/Not Resolved]
  - Abdominal discomfort [Not Recovered/Not Resolved]
  - Haemorrhoidal haemorrhage [Unknown]
  - Leukocytosis [Not Recovered/Not Resolved]
  - Inflammation [Unknown]
  - Dizziness [Recovering/Resolving]
  - Hypertension [Recovering/Resolving]
  - Fatigue [Recovering/Resolving]
  - Nausea [Recovering/Resolving]
  - Hepatic enzyme increased [Not Recovered/Not Resolved]

NARRATIVE: CASE EVENT DATE: 20220407
